FAERS Safety Report 11591033 (Version 1)
Quarter: 2015Q4

REPORT INFORMATION
  Report Type: Spontaneous
  Country: FR (occurrence: FR)
  Receive Date: 20151003
  Receipt Date: 20151003
  Transmission Date: 20160304
  Serious: Yes (Hospitalization)
  Sender: FDA-Public Use
  Company Number: FR-AUROBINDO-AUR-APL-2015-08742

PATIENT
  Age: 15 Year
  Sex: Female

DRUGS (4)
  1. FLUOXETINE ARROW [Suspect]
     Active Substance: FLUOXETINE HYDROCHLORIDE
     Indication: PRODUCT USED FOR UNKNOWN INDICATION
     Dosage: 15 MG, TWO TIMES A DAY
     Route: 048
     Dates: start: 20150807
  2. DUROGESIC [Suspect]
     Active Substance: FENTANYL
     Indication: PAIN
     Dosage: 0.333 DF, EVERY 3 DAYS
     Route: 062
     Dates: start: 201507, end: 20150908
  3. NORVIR [Suspect]
     Active Substance: RITONAVIR
     Indication: HIV INFECTION
     Dosage: 60 MG, TWO TIMES A DAY
     Route: 065
     Dates: start: 201501
  4. PREZISTA [Suspect]
     Active Substance: DARUNAVIR ETHANOLATE
     Indication: HIV INFECTION
     Dosage: 250 MG, TWO TIMES A DAY
     Route: 048
     Dates: start: 201501

REACTIONS (4)
  - Somnolence [Recovering/Resolving]
  - Drug ineffective [Recovering/Resolving]
  - Disturbance in attention [Recovering/Resolving]
  - Asthenia [Recovering/Resolving]

NARRATIVE: CASE EVENT DATE: 201508
